FAERS Safety Report 9410668 (Version 1)
Quarter: 2013Q2

REPORT INFORMATION
  Report Type: Spontaneous
  Country: DE (occurrence: None)
  Receive Date: 20130424
  Receipt Date: 20130424
  Transmission Date: 20140414
  Serious: Yes (Life-Threatening, Hospitalization)
  Sender: FDA-Public Use
  Company Number: GER/GER/12/0025886

PATIENT
  Age: 73 Year
  Sex: Female
  Weight: 90 kg

DRUGS (15)
  1. METFORMIN (METFORMIN) [Suspect]
     Indication: TYPE 2 DIABETES MELLITUS
     Route: 048
     Dates: start: 2010
  2. ASS 100 (ACETYLSALICYLIC ACID) [Concomitant]
  3. FURORESE (FUROSEMIDE) [Concomitant]
  4. HCT (HYDROCHLOROTHIAZIDE) [Concomitant]
  5. CAPTOPRIL (CAPTOPRIL) [Concomitant]
  6. GLIMEPIRID (GLIMEPIRIDE) [Concomitant]
  7. NEURO-RATIOPHARM (VITAMINES-B-LABAZ) [Concomitant]
  8. ZOPICLON (ZOPICLONE) [Concomitant]
  9. FENISTIL RET. 24 STD. (DIMETINDENE MALEATE) [Concomitant]
  10. CEFUROXIM (CEFUROXIME SODIUM) [Concomitant]
  11. RAMIPRIL (RAMIPRIL) [Concomitant]
  12. ACTRAPHANE 30 PENFILL 100 (HUMAN MIXTARD) [Concomitant]
  13. BISOPROLOL (BISOPROLOL) [Concomitant]
  14. NOVALGIN TROPFEN (METAMIZOLE) [Concomitant]
  15. NITRENDIPIN (NITRENDIPINE) [Concomitant]

REACTIONS (3)
  - Lactic acidosis [None]
  - Renal failure acute [None]
  - Hyperkalaemia [None]
